FAERS Safety Report 7345625-9 (Version None)
Quarter: 2011Q1

REPORT INFORMATION
  Report Type: 
  Country: None (occurrence: None)
  Receive Date: 20110310
  Receipt Date: 20110216
  Transmission Date: 20110831
  Serious: Yes (Death)
  Sender: FDA-Public Use
  Company Number: A0914058A

PATIENT
  Sex: Female

DRUGS (1)
  1. TYKERB [Suspect]
     Dosage: 1250MG PER DAY
     Route: 048
     Dates: start: 20110128

REACTIONS (6)
  - FATIGUE [None]
  - HYPERSOMNIA [None]
  - MALAISE [None]
  - ASTHENIA [None]
  - DYSPNOEA [None]
  - DEATH [None]
